FAERS Safety Report 6151043-1 (Version None)
Quarter: 2009Q2

REPORT INFORMATION
  Report Type: 
  Country: None (occurrence: None)
  Receive Date: 20090410
  Receipt Date: 20090312
  Transmission Date: 20091009
  Serious: No
  Sender: FDA-Public Use
  Company Number: A0772797A

PATIENT
  Age: 69 Year
  Sex: Female

DRUGS (8)
  1. TYKERB [Suspect]
     Indication: BREAST CANCER
     Dosage: 1250MG PER DAY
     Route: 048
     Dates: start: 20090307
  2. XELODA [Suspect]
     Indication: BREAST CANCER
     Dosage: 1800MG TWICE PER DAY
     Route: 048
     Dates: start: 20090307
  3. LIPITOR [Concomitant]
  4. VERAPAMIL [Concomitant]
  5. ZOCOR [Concomitant]
  6. LISINOPRIL [Concomitant]
  7. XANAX [Concomitant]
  8. COMPAZINE [Concomitant]

REACTIONS (3)
  - INSOMNIA [None]
  - NAUSEA [None]
  - VOMITING [None]
